FAERS Safety Report 21380501 (Version 1)
Quarter: 2022Q3

REPORT INFORMATION
  Report Type: Spontaneous
  Country: US (occurrence: None)
  Receive Date: 20220923
  Receipt Date: 20220923
  Transmission Date: 20221027
  Serious: Yes (Death)
  Sender: FDA-Public Use
  Company Number: None

PATIENT
  Sex: Male

DRUGS (13)
  1. ABIRATERONE ACETATE [Suspect]
     Active Substance: ABIRATERONE ACETATE
     Indication: Hodgkin^s disease
     Route: 048
     Dates: start: 20220906
  2. AMLODIPINE TAB [Concomitant]
  3. APAP/CODEINE TAB [Concomitant]
  4. ATORVASTATIN [Concomitant]
     Active Substance: ATORVASTATIN
  5. GABAPENTIN [Concomitant]
     Active Substance: GABAPENTIN
  6. ACETAMINOPHEN\HYDROCODONE [Concomitant]
     Active Substance: ACETAMINOPHEN\HYDROCODONE
  7. MELOXICAM TAB [Concomitant]
  8. METFORMIN TAB [Concomitant]
  9. METOPROL SUC TAB [Concomitant]
  10. TERBINAFINE TAB [Concomitant]
  11. TRIAMCINOLON CRE [Concomitant]
  12. XTANDI CAP [Concomitant]
  13. XTANDI [Concomitant]
     Active Substance: ENZALUTAMIDE

REACTIONS (1)
  - Death [None]
